FAERS Safety Report 25104792 (Version 2)
Quarter: 2025Q1

REPORT INFORMATION
  Report Type: Spontaneous
  Country: CN (occurrence: CN)
  Receive Date: 20250321
  Receipt Date: 20250325
  Transmission Date: 20250409
  Serious: Yes (Death, Life-Threatening, Hospitalization)
  Sender: PFIZER
  Company Number: CN-MLMSERVICE-20250313-PI442908-00270-1

PATIENT
  Age: 22 Year
  Sex: Male

DRUGS (2)
  1. METHYLPREDNISOLONE [Suspect]
     Active Substance: METHYLPREDNISOLONE
     Indication: Glomerulonephritis minimal lesion
     Dosage: 16 MG, 1X/DAY (LONG-TERM)
     Route: 048
  2. METHYLPREDNISOLONE [Suspect]
     Active Substance: METHYLPREDNISOLONE
     Indication: Nephrotic syndrome

REACTIONS (14)
  - Disseminated varicella zoster virus infection [Fatal]
  - Multiple organ dysfunction syndrome [Fatal]
  - Cardiac arrest [Fatal]
  - Bacterial infection [Unknown]
  - Coagulopathy [Unknown]
  - Hyponatraemia [Unknown]
  - Hyperlactacidaemia [Unknown]
  - Haematological infection [Unknown]
  - Septic shock [Unknown]
  - Anuria [Unknown]
  - Myelosuppression [Unknown]
  - Respiratory failure [Unknown]
  - Haemorrhage [Unknown]
  - Arrhythmia [Unknown]
